FAERS Safety Report 6405655-8 (Version None)
Quarter: 2009Q4

REPORT INFORMATION
  Report Type: 
  Country: None (occurrence: None)
  Receive Date: 20091019
  Receipt Date: 20091019
  Transmission Date: 20100525
  Serious: Yes (Death)
  Sender: FDA-Public Use
  Company Number: B0597384A

PATIENT
  Sex: Female

DRUGS (2)
  1. ROPINIROLE HYDROCHLORIDE [Suspect]
     Indication: DRUG USE FOR UNKNOWN INDICATION
     Dosage: 9MG PER DAY
     Route: 048
  2. RISPERIDONE [Suspect]
     Indication: DRUG USE FOR UNKNOWN INDICATION
     Route: 065

REACTIONS (3)
  - DEATH [None]
  - MEDICATION ERROR [None]
  - WRONG DRUG ADMINISTERED [None]
